FAERS Safety Report 10609253 (Version 1)
Quarter: 2014Q4

REPORT INFORMATION
  Report Type: Spontaneous
  Country: US (occurrence: US)
  Receive Date: 20141126
  Receipt Date: 20141126
  Transmission Date: 20150529
  Serious: Yes (Hospitalization)
  Sender: FDA-Public Use
  Company Number: US-BEH-2014046518

PATIENT
  Age: 55 Year
  Sex: Female
  Weight: 73 kg

DRUGS (26)
  1. PRIVIGEN [Suspect]
     Active Substance: HUMAN IMMUNOGLOBULIN G
     Indication: HODGKIN^S DISEASE
     Route: 042
  2. FLUTICASONE [Concomitant]
     Active Substance: FLUTICASONE\FLUTICASONE PROPIONATE
  3. PHENTERMINE [Concomitant]
     Active Substance: PHENTERMINE
  4. DIPHENHYDRAMINE [Concomitant]
     Active Substance: DIPHENHYDRAMINE
  5. FLUOXETINE [Concomitant]
     Active Substance: FLUOXETINE\FLUOXETINE HYDROCHLORIDE
  6. LEVAQUIN [Concomitant]
     Active Substance: LEVOFLOXACIN
  7. SINGULAIR [Concomitant]
     Active Substance: MONTELUKAST SODIUM
  8. DEXMETHYLPHENIDATE [Concomitant]
     Active Substance: DEXMETHYLPHENIDATE HYDROCHLORIDE
  9. MIACALCIN [Concomitant]
     Active Substance: CALCITONIN SALMON
  10. LEXAPRO [Concomitant]
     Active Substance: ESCITALOPRAM OXALATE
  11. ESTRADIOL. [Concomitant]
     Active Substance: ESTRADIOL
  12. OXYCODONE [Concomitant]
     Active Substance: OXYCODONE
  13. EPIPEN [Concomitant]
     Active Substance: EPINEPHRINE
  14. SODIUM CHLORIDE. [Concomitant]
     Active Substance: SODIUM CHLORIDE
  15. IMIPRAMINE [Concomitant]
     Active Substance: IMIPRAMINE
  16. SEROQUEL [Concomitant]
     Active Substance: QUETIAPINE FUMARATE
  17. HEPARIN [Concomitant]
     Active Substance: HEPARIN SODIUM
  18. LMX [Concomitant]
     Active Substance: LIDOCAINE
  19. SOLU-MEDROL [Concomitant]
     Active Substance: METHYLPREDNISOLONE SODIUM SUCCINATE
  20. AZELASTINE [Concomitant]
     Active Substance: AZELASTINE
  21. PRIVIGEN [Suspect]
     Active Substance: HUMAN IMMUNOGLOBULIN G
     Route: 042
  22. AMOXICILLIN. [Concomitant]
     Active Substance: AMOXICILLIN
  23. TOPIRAMATE. [Concomitant]
     Active Substance: TOPIRAMATE
  24. DEPO-TESTADOIL [Concomitant]
  25. PREDNISONE. [Concomitant]
     Active Substance: PREDNISONE
  26. XANAX [Concomitant]
     Active Substance: ALPRAZOLAM

REACTIONS (1)
  - Pneumonia [Unknown]

NARRATIVE: CASE EVENT DATE: 201410
